FAERS Safety Report 9034381 (Version 1)
Quarter: 2013Q1

REPORT INFORMATION
  Report Type: Spontaneous
  Country: SG (occurrence: None)
  Receive Date: 20130111
  Receipt Date: 20130111
  Transmission Date: 20140127
  Serious: Yes (Hospitalization, Other)
  Sender: FDA-Public Use
  Company Number: 2013P1000036

PATIENT
  Age: 52 Year
  Sex: 0

DRUGS (1)
  1. AMOXICILLIN + CLAVULANATE POTASSIUM [Suspect]
     Indication: OTITIS MEDIA

REACTIONS (9)
  - Drug reaction with eosinophilia and systemic symptoms [None]
  - Mucosal inflammation [None]
  - Mouth ulceration [None]
  - Pyrexia [None]
  - Diarrhoea [None]
  - Transaminases increased [None]
  - Skin exfoliation [None]
  - Hypokalaemia [None]
  - Post inflammatory pigmentation change [None]
